FAERS Safety Report 5267285-3 (Version None)
Quarter: 2007Q1

REPORT INFORMATION
  Report Type: 
  Country: None (occurrence: None)
  Receive Date: 20070316
  Receipt Date: 20070308
  Transmission Date: 20070707
  Serious: Yes (Hospitalization, Other)
  Sender: FDA-Public Use
  Company Number: EG-GLAXOSMITHKLINE-B0450937A

PATIENT
  Age: 66 Year
  Sex: Male

DRUGS (4)
  1. FORTUM [Suspect]
     Dosage: 2G PER DAY
     Route: 042
     Dates: start: 20061206, end: 20061210
  2. ZANTAC [Concomitant]
     Dates: start: 20061206, end: 20061210
  3. DICYNONE [Concomitant]
     Dates: start: 20061206, end: 20061206
  4. CEPHALOSPORIN [Concomitant]

REACTIONS (4)
  - BLOOD CREATININE INCREASED [None]
  - NEPHRITIS INTERSTITIAL [None]
  - OLIGURIA [None]
  - PHARMACEUTICAL PRODUCT COMPLAINT [None]
